FAERS Safety Report 4849842-9 (Version None)
Quarter: 2005Q4

REPORT INFORMATION
  Report Type: 
  Country: None (occurrence: None)
  Receive Date: 20051114
  Receipt Date: 20040916
  Transmission Date: 20060501
  Serious: Yes (Other)
  Sender: FDA-Public Use
  Company Number: 200412525US

PATIENT
  Age: 73 Year
  Sex: Female

DRUGS (5)
  1. ANZEMET [Suspect]
     Indication: OVARIAN CANCER
     Dosage: 100 MG Q3W IV
     Route: 042
     Dates: start: 20031119, end: 20040312
  2. DEXAMETHASONE TAB [Concomitant]
  3. DIPHENHYDRAMINE HYDROCHLORIDE (BENADRYL /OLD FORM/) [Concomitant]
  4. TAXOL [Concomitant]
  5. CARBOPLATIN [Concomitant]

REACTIONS (5)
  - ANAPHYLACTIC REACTION [None]
  - BLOOD PRESSURE DECREASED [None]
  - PRURITUS [None]
  - SWELLING FACE [None]
  - URTICARIA GENERALISED [None]
